FAERS Safety Report 7056056-3 (Version None)
Quarter: 2010Q4

REPORT INFORMATION
  Report Type: 
  Country: None (occurrence: None)
  Receive Date: 20101021
  Receipt Date: 20101013
  Transmission Date: 20110411
  Serious: Yes (Congenital Anomaly)
  Sender: FDA-Public Use
  Company Number: B0680427A

PATIENT
  Sex: Female

DRUGS (5)
  1. LAMICTAL [Suspect]
     Indication: PRODUCT USED FOR UNKNOWN INDICATION
  2. TRILAFON [Suspect]
     Indication: PRODUCT USED FOR UNKNOWN INDICATION
  3. DISIPAL [Suspect]
     Indication: PRODUCT USED FOR UNKNOWN INDICATION
  4. ORFIRIL [Suspect]
     Indication: EPILEPSY
  5. ORFIRIL [Suspect]
     Indication: PRODUCT USED FOR UNKNOWN INDICATION
     Route: 065

REACTIONS (8)
  - ATTENTION DEFICIT/HYPERACTIVITY DISORDER [None]
  - COGNITIVE DISORDER [None]
  - DRUG EXPOSURE DURING PREGNANCY [None]
  - DRUG WITHDRAWAL SYNDROME NEONATAL [None]
  - DYSKINESIA [None]
  - EPILEPSY [None]
  - SENSORIMOTOR DISORDER [None]
  - VITAMIN K DEFICIENCY [None]
